FAERS Safety Report 5930457-6 (Version None)
Quarter: 2008Q4

REPORT INFORMATION
  Report Type: 
  Country: None (occurrence: None)
  Receive Date: 20081022
  Receipt Date: 20081010
  Transmission Date: 20090506
  Serious: Yes (Hospitalization, Other)
  Sender: FDA-Public Use
  Company Number: 2008-03336

PATIENT
  Age: 61 Year
  Sex: Male
  Weight: 85.3 kg

DRUGS (15)
  1. VELCADE [Suspect]
     Indication: MULTIPLE MYELOMA
     Dosage: 1 MG/M2, INTRAVENOUS
     Route: 042
     Dates: start: 20080520
  2. ALLOPURINOL [Concomitant]
  3. PROCARDIA [Concomitant]
  4. LASIX [Concomitant]
  5. MORPHINE [Concomitant]
  6. MORPHINE SULFATE [Concomitant]
  7. AMITRIPTYLINE HYDROCHLORIDE [Concomitant]
  8. CARAFATE [Concomitant]
  9. FOLIC ACID [Concomitant]
  10. NIFEDIPINE [Concomitant]
  11. PRILOSEC [Concomitant]
  12. SENNA (SENNA) [Concomitant]
  13. TRINSICON (CYANOCOBALAMIN WITH INTRINSIC FACTOR CO, FERROUS FUMARATE, [Concomitant]
  14. IRON (IRON) [Concomitant]
  15. DOXIL [Concomitant]

REACTIONS (10)
  - ASTHENIA [None]
  - BLOOD GLUCOSE INCREASED [None]
  - CELLULITIS [None]
  - FALL [None]
  - HERPES ZOSTER [None]
  - HYPERCALCAEMIA [None]
  - MYOCARDIAL INFARCTION [None]
  - OEDEMA PERIPHERAL [None]
  - PAIN IN EXTREMITY [None]
  - SYRINGOMYELIA [None]
